FAERS Safety Report 17272729 (Version 6)
Quarter: 2020Q2

REPORT INFORMATION
  Report Type: Spontaneous
  Country: US (occurrence: US)
  Receive Date: 20200115
  Receipt Date: 20200401
  Transmission Date: 20200713
  Serious: No
  Sender: FDA-Public Use
  Company Number: US-PFIZER INC-2020018526

PATIENT
  Age: 85 Year
  Sex: Female
  Weight: 49.9 kg

DRUGS (2)
  1. AROMASIN [Suspect]
     Active Substance: EXEMESTANE
     Indication: BREAST MASS
  2. AROMASIN [Suspect]
     Active Substance: EXEMESTANE
     Indication: BREAST CANCER FEMALE
     Dosage: 25 MG, DAILY IN MORNING
     Route: 048
     Dates: start: 20191119

REACTIONS (3)
  - Hyperaesthesia teeth [Recovered/Resolved]
  - Toothache [Recovered/Resolved]
  - Amusia [Not Recovered/Not Resolved]

NARRATIVE: CASE EVENT DATE: 20191231
